FAERS Safety Report 10761340 (Version 1)
Quarter: 2015Q1

REPORT INFORMATION
  Report Type: Spontaneous
  Country: US (occurrence: None)
  Receive Date: 20150203
  Receipt Date: 20150203
  Transmission Date: 20150721
  Serious: Yes (Hospitalization)
  Sender: FDA-Public Use
  Company Number: None

PATIENT
  Age: 80 Year
  Sex: Male
  Weight: 77.7 kg

DRUGS (1)
  1. HYDROCHLOROTHIAZIDE/LISINOPRIL [Suspect]
     Active Substance: HYDROCHLOROTHIAZIDE\LISINOPRIL
     Indication: HYPERTENSION
     Dosage: 1 TAB EVERY DAY
     Route: 048
     Dates: start: 20150109, end: 20150131

REACTIONS (4)
  - Polyuria [None]
  - Acute kidney injury [None]
  - Fluid intake reduced [None]
  - Hyponatraemia [None]

NARRATIVE: CASE EVENT DATE: 20150131
